FAERS Safety Report 4667115-4 (Version None)
Quarter: 2005Q2

REPORT INFORMATION
  Report Type: 
  Country: None (occurrence: None)
  Receive Date: 20050520
  Receipt Date: 20050201
  Transmission Date: 20051028
  Serious: Yes (Hospitalization)
  Sender: FDA-Public Use
  Company Number: PHBS2005IT01846

PATIENT
  Age: 59 Year
  Sex: Male

DRUGS (4)
  1. ZOMETA [Suspect]
     Indication: BONE NEOPLASM MALIGNANT
     Dosage: 4 MG, QMO
     Route: 042
     Dates: start: 20021207, end: 20040929
  2. NEUPOGEN [Concomitant]
     Route: 065
  3. CARBOPLATINO [Concomitant]
     Route: 065
  4. VINORELBINE TARTRATE [Concomitant]
     Route: 065

REACTIONS (3)
  - JAW DISORDER [None]
  - OSTEONECROSIS [None]
  - OSTEOTOMY [None]
